FAERS Safety Report 7390097-1 (Version None)
Quarter: 2011Q1

REPORT INFORMATION
  Report Type: 
  Country: None (occurrence: None)
  Receive Date: 20110324
  Receipt Date: 20110315
  Transmission Date: 20110831
  Serious: Yes (Other)
  Sender: FDA-Public Use
  Company Number: ACO_22323_2010

PATIENT
  Age: 47 Year
  Sex: Male
  Weight: 93 kg

DRUGS (11)
  1. AMBIEN [Concomitant]
  2. BACLOFEN [Concomitant]
  3. AMPYRA [Suspect]
     Indication: GAIT DISTURBANCE
     Dosage: 10 MG, BID, ORAL; 10 MG, QD , ORAL; 10 MG, BID
     Route: 048
     Dates: start: 20100830
  4. AMPYRA [Suspect]
     Indication: GAIT DISTURBANCE
     Dosage: 10 MG, BID, ORAL; 10 MG, QD , ORAL; 10 MG, BID
     Route: 048
     Dates: start: 20100312, end: 20100101
  5. AMPYRA [Suspect]
     Indication: GAIT DISTURBANCE
     Dosage: 10 MG, BID, ORAL; 10 MG, QD , ORAL; 10 MG, BID
     Route: 048
     Dates: start: 20100101, end: 20100805
  6. NORTRIPTYLINE (NORTRIPTYLINE) [Concomitant]
  7. TYSABRI [Concomitant]
  8. PROVIGIL [Concomitant]
  9. XANAX [Concomitant]
  10. VITAMIN D NOS (VITAMIN D NOS) [Concomitant]
  11. NEURONTIN [Concomitant]

REACTIONS (7)
  - UNRESPONSIVE TO STIMULI [None]
  - CONVULSION [None]
  - DYSPNOEA [None]
  - HYPERVENTILATION [None]
  - FEELING ABNORMAL [None]
  - MULTIPLE SCLEROSIS RELAPSE [None]
  - INAPPROPRIATE SCHEDULE OF DRUG ADMINISTRATION [None]
